FAERS Safety Report 24758131 (Version 1)
Quarter: 2024Q4

REPORT INFORMATION
  Report Type: Spontaneous
  Country: US (occurrence: US)
  Receive Date: 20241220
  Receipt Date: 20241220
  Transmission Date: 20250114
  Serious: No
  Sender: UCB
  Company Number: US-UCBSA-2024054682

PATIENT
  Age: 4 Decade
  Sex: Female

DRUGS (1)
  1. BIMZELX [Suspect]
     Active Substance: BIMEKIZUMAB-BKZX
     Indication: Product used for unknown indication
     Dosage: UNK

REACTIONS (7)
  - Limb deformity [Unknown]
  - Joint deformity [Unknown]
  - Arthropathy [Unknown]
  - Hypersensitivity [Unknown]
  - Pain [Unknown]
  - Dry skin [Unknown]
  - Adverse event [Unknown]
